FAERS Safety Report 9360916 (Version 1)
Quarter: 2013Q2

REPORT INFORMATION
  Report Type: Spontaneous
  Country: GB (occurrence: GB)
  Receive Date: 20130621
  Receipt Date: 20130621
  Transmission Date: 20140414
  Serious: Yes (Hospitalization, Other)
  Sender: FDA-Public Use
  Company Number: PHHY2013GB060955

PATIENT
  Age: 84 Year
  Sex: Male

DRUGS (8)
  1. ATORVASTATIN [Suspect]
     Indication: ACUTE MYOCARDIAL INFARCTION
     Dosage: TAKEN AT NIGHT.
     Route: 048
     Dates: start: 20130412, end: 20130601
  2. AMLODIPINE [Concomitant]
  3. ASPIRIN [Concomitant]
  4. BISOPROLOL [Concomitant]
  5. CLOPIDOGREL [Concomitant]
  6. FUROSEMIDE [Concomitant]
  7. SALAMOL (SALBUTAMOL SULFATE) [Concomitant]
  8. SERETIDE [Concomitant]

REACTIONS (1)
  - Renal failure acute [Not Recovered/Not Resolved]
